FAERS Safety Report 8772643 (Version 3)
Quarter: 2013Q1

REPORT INFORMATION
  Report Type: Spontaneous
  Country: US (occurrence: US)
  Receive Date: 20120905
  Receipt Date: 20130110
  Transmission Date: 20140127
  Serious: Yes (Hospitalization)
  Sender: FDA-Public Use
  Company Number: US-BAYER-2012-090744

PATIENT
  Age: 20 Year
  Sex: Female

DRUGS (5)
  1. YASMIN [Suspect]
     Dosage: UNK
  2. PREVACID [Concomitant]
     Indication: GASTROOESOPHAGEAL REFLUX DISEASE
     Dosage: UNK, ONE DAILY
  3. NAPROSYN [Concomitant]
     Indication: PAIN
     Dosage: UNK
     Dates: start: 20050101
  4. DEPO PROVERA [Concomitant]
     Indication: MENORRHAGIA
     Dosage: UNK
     Dates: end: 200511
  5. DEPO PROVERA [Concomitant]
     Indication: DYSMENORRHOEA

REACTIONS (1)
  - Deep vein thrombosis [Recovered/Resolved]
